FAERS Safety Report 6515835-9 (Version None)
Quarter: 2009Q4

REPORT INFORMATION
  Report Type: 
  Country: None (occurrence: None)
  Receive Date: 20091223
  Receipt Date: 20090402
  Transmission Date: 20100525
  Serious: Yes (Other)
  Sender: FDA-Public Use
  Company Number: US-BAYER-200829538NA

PATIENT
  Age: 54 Year
  Sex: Male
  Weight: 104 kg

DRUGS (20)
  1. MAGNEVIST [Suspect]
     Indication: NUCLEAR MAGNETIC RESONANCE IMAGING
     Dates: start: 20010529, end: 20010529
  2. OMNISCAN [Suspect]
     Indication: NUCLEAR MAGNETIC RESONANCE IMAGING
     Dates: start: 20041104, end: 20041104
  3. OMNISCAN [Suspect]
     Dates: start: 20050118, end: 20050118
  4. OMNISCAN [Suspect]
     Dates: start: 20060913, end: 20060913
  5. OMNISCAN [Suspect]
     Dates: start: 20060630, end: 20060630
  6. OMNISCAN [Suspect]
     Dosage: AS PER SUMMONS
     Dates: start: 20060810, end: 20060810
  7. OMNISCAN [Suspect]
     Dates: start: 20060701, end: 20060701
  8. ASPIRIN [Concomitant]
  9. NEXIUM [Concomitant]
  10. PLAVIX [Concomitant]
  11. SYNTHROID [Concomitant]
  12. RENAGEL [Concomitant]
  13. PRANDIN [Concomitant]
  14. COUMADIN [Concomitant]
  15. NEPHROCAPS [Concomitant]
  16. GLYBURIDE [Concomitant]
  17. EPOGEN [Concomitant]
     Dosage: DURING DIALYSIS
     Route: 042
  18. KEFLEX [Concomitant]
  19. PREDNISONE [Concomitant]
  20. HYDROCORTISONE [Concomitant]

REACTIONS (26)
  - ANHEDONIA [None]
  - ANXIETY [None]
  - ASTHENIA [None]
  - DRY SKIN [None]
  - ERYTHEMA [None]
  - GAIT DISTURBANCE [None]
  - INDURATION [None]
  - INJURY [None]
  - JOINT RANGE OF MOTION DECREASED [None]
  - MOBILITY DECREASED [None]
  - MUSCLE TIGHTNESS [None]
  - NEPHROGENIC SYSTEMIC FIBROSIS [None]
  - OEDEMA [None]
  - OEDEMA PERIPHERAL [None]
  - PAIN [None]
  - PRURITUS [None]
  - RASH [None]
  - RASH PAPULAR [None]
  - SCAR [None]
  - SKIN DISORDER [None]
  - SKIN EXFOLIATION [None]
  - SKIN FIBROSIS [None]
  - SKIN HYPERTROPHY [None]
  - SKIN LESION [None]
  - SKIN NODULE [None]
  - SWELLING [None]
